FAERS Safety Report 9235912 (Version 1)
Quarter: 2013Q1

REPORT INFORMATION
  Report Type: Spontaneous
  Country: US (occurrence: None)
  Receive Date: 20121031
  Receipt Date: 20121031
  Transmission Date: 20140127
  Serious: No
  Sender: FDA-Public Use
  Company Number: PHEH2012US011317

PATIENT
  Age: 47 Year
  Sex: Female
  Weight: 90.7 kg

DRUGS (1)
  1. GILENYA (FTY) CAPSULE, 0.5MG [Suspect]
     Indication: MULTIPLE SCLEROSIS
     Route: 048
     Dates: start: 20120529

REACTIONS (8)
  - Weight decreased [None]
  - Eye pain [None]
  - Dizziness [None]
  - Nasopharyngitis [None]
  - Ear pain [None]
  - Menstruation delayed [None]
  - Weight increased [None]
  - Hemiparesis [None]
